FAERS Safety Report 9396420 (Version 1)
Quarter: 2013Q3

REPORT INFORMATION
  Report Type: Spontaneous
  Country: US (occurrence: None)
  Receive Date: 20130708
  Receipt Date: 20130708
  Transmission Date: 20140515
  Serious: Yes (Life-Threatening, Hospitalization)
  Sender: FDA-Public Use
  Company Number: 1713747-2013-99915

PATIENT
  Sex: 0

DRUGS (1)
  1. DELFLEX [Suspect]

REACTIONS (1)
  - Convulsion [None]
